FAERS Safety Report 25931752 (Version 4)
Quarter: 2025Q4

REPORT INFORMATION
  Report Type: Spontaneous
  Country: US (occurrence: US)
  Receive Date: 20251016
  Receipt Date: 20251211
  Transmission Date: 20260118
  Serious: Yes (Other)
  Sender: PFIZER
  Company Number: US-PFIZER INC-PV202500121361

PATIENT
  Age: 83 Year
  Sex: Female
  Weight: 52.154 kg

DRUGS (4)
  1. GEMCITABINE HYDROCHLORIDE [Suspect]
     Active Substance: GEMCITABINE HYDROCHLORIDE
     Indication: Bladder cancer
     Dosage: UNK, WEEKLY (ONCE A WEEK FOR 6 WEEKS)
     Route: 043
     Dates: start: 20250210
  2. GEMCITABINE HYDROCHLORIDE [Suspect]
     Active Substance: GEMCITABINE HYDROCHLORIDE
     Dosage: UNK, MONTHLY (FIRST MAINTENANCE DOSE)
     Route: 043
     Dates: start: 20251006
  3. DOCETAXEL [Concomitant]
     Active Substance: DOCETAXEL
     Indication: Bladder cancer
     Dosage: UNK, WEEKLY (ONCE A WEEK FOR 6 WEEKS)
     Route: 043
  4. DOCETAXEL [Concomitant]
     Active Substance: DOCETAXEL
     Dosage: UNK, MONTHLY (ONCE A MONTH)
     Route: 043
     Dates: start: 20251006

REACTIONS (3)
  - Malignant neoplasm progression [Unknown]
  - Bladder cancer [Unknown]
  - Off label use [Unknown]

NARRATIVE: CASE EVENT DATE: 20250210
